FAERS Safety Report 9608618 (Version 1)
Quarter: 2013Q4

REPORT INFORMATION
  Report Type: Spontaneous
  Country: GB (occurrence: None)
  Receive Date: 20131007
  Receipt Date: 20131007
  Transmission Date: 20140711
  Serious: Yes (Disabling)
  Sender: FDA-Public Use
  Company Number: AUR-APL-2013-00961

PATIENT
  Age: 78 Year
  Sex: Male
  Weight: 63 kg

DRUGS (4)
  1. TAMSULOSIN [Suspect]
     Indication: PRODUCT USED FOR UNKNOWN INDICATION
     Dates: start: 20121210, end: 20130114
  2. ALPHADERM [Concomitant]
  3. FERROUS SULPHATE [Concomitant]
  4. INDORAMIN [Concomitant]

REACTIONS (2)
  - Insomnia [None]
  - Poor quality sleep [None]
